FAERS Safety Report 8724494 (Version 2)
Quarter: 2013Q3

REPORT INFORMATION
  Report Type: Spontaneous
  Country: US (occurrence: US)
  Receive Date: 20120815
  Receipt Date: 20130927
  Transmission Date: 20140515
  Serious: No
  Sender: FDA-Public Use
  Company Number: US-BRISTOL-MYERS SQUIBB COMPANY-16736597

PATIENT
  Age: 87 Year
  Sex: Female
  Weight: 58.96 kg

DRUGS (1)
  1. ONGLYZA TABS 5 MG [Suspect]
     Dosage: 1/2 OF2MG TABDAILY+DOSE INCREASED TO 2.5MG THEN5MG,PRESCRIPTION #: 1139897-05037,1MG/DAY
     Dates: start: 20120410

REACTIONS (2)
  - Drug ineffective [Unknown]
  - Weight decreased [Unknown]
